FAERS Safety Report 24106001 (Version 2)
Quarter: 2024Q3

REPORT INFORMATION
  Report Type: Spontaneous
  Country: CA (occurrence: CA)
  Receive Date: 20240717
  Receipt Date: 20240909
  Transmission Date: 20241017
  Serious: Yes (Other)
  Sender: PFIZER
  Company Number: CA-PFIZER INC-PV202400085397

PATIENT
  Age: 65 Year
  Sex: Male
  Weight: 65 kg

DRUGS (1)
  1. RUXIENCE [Suspect]
     Active Substance: RITUXIMAB-PVVR
     Indication: Central nervous system lymphoma
     Dosage: 660 MG (375 MG/M2), EVERY 3 WEEKS
     Route: 042
     Dates: start: 20240624

REACTIONS (2)
  - Transplant [Unknown]
  - Off label use [Unknown]
